FAERS Safety Report 9558000 (Version 1)
Quarter: 2013Q3

REPORT INFORMATION
  Report Type: Spontaneous
  Country: US (occurrence: US)
  Receive Date: 20130926
  Receipt Date: 20130926
  Transmission Date: 20140515
  Serious: No
  Sender: FDA-Public Use
  Company Number: US-BIOGENIDEC-2013BI034953

PATIENT
  Age: 56 Year
  Sex: Female

DRUGS (7)
  1. TECFIDERA [Suspect]
     Indication: PRODUCT USED FOR UNKNOWN INDICATION
     Route: 048
     Dates: start: 20130411
  2. AMPYRA [Concomitant]
  3. TRAMADOL [Concomitant]
  4. PRILOSEC [Concomitant]
  5. MULTIVITAMIN [Concomitant]
  6. REGLAN [Concomitant]
  7. BACLOFEN [Concomitant]

REACTIONS (1)
  - Hot flush [Unknown]
